FAERS Safety Report 7260701-7 (Version None)
Quarter: 2011Q1

REPORT INFORMATION
  Report Type: 
  Country: None (occurrence: None)
  Receive Date: 20110130
  Receipt Date: 20101220
  Transmission Date: 20110831
  Serious: No
  Sender: FDA-Public Use
  Company Number: US-ABBOTT-10P-163-0693003-00

PATIENT
  Sex: Female

DRUGS (3)
  1. MOBIC [Concomitant]
     Indication: RHEUMATOID ARTHRITIS
  2. LEFLUNOMIDE [Suspect]
     Indication: RHEUMATOID ARTHRITIS
     Dates: start: 20100601
  3. HUMIRA [Suspect]
     Indication: RHEUMATOID ARTHRITIS
     Dates: start: 20080101

REACTIONS (5)
  - LARYNGITIS [None]
  - CONTUSION [None]
  - LIMB INJURY [None]
  - BRONCHITIS [None]
  - LOCALISED INFECTION [None]
